APPROVED DRUG PRODUCT: CYTALUX
Active Ingredient: PAFOLACIANINE SODIUM
Strength: EQ 3.2MG BASE/1.6ML (EQ 2MG BASE/ML)
Dosage Form/Route: SOLUTION;INTRAVENOUS
Application: N214907 | Product #001
Applicant: ON TARGET LABORATORIES INC
Approved: Nov 29, 2021 | RLD: Yes | RS: Yes | Type: RX

PATENTS:
Patent 9333270 | Expires: Aug 26, 2033
Patent 9061057 | Expires: Aug 26, 2033
Patent 10881747 | Expires: Aug 26, 2033
Patent 9789208 | Expires: Aug 26, 2033
Patent 9254341 | Expires: Oct 4, 2033
Patent 9341629 | Expires: Aug 26, 2033

EXCLUSIVITY:
Code: NCE | Date: Nov 29, 2026
Code: ODE-390 | Date: Nov 29, 2028